FAERS Safety Report 6016616-5 (Version None)
Quarter: 2008Q4

REPORT INFORMATION
  Report Type: 
  Country: None (occurrence: None)
  Receive Date: 20081222
  Receipt Date: 20081213
  Transmission Date: 20090506
  Serious: Yes (Other)
  Sender: FDA-Public Use
  Company Number: PHHY2008GR31807

PATIENT

DRUGS (4)
  1. EUCREAS [Suspect]
     Dosage: UNK
     Dates: end: 20081201
  2. DIURETICS [Concomitant]
  3. WARFARIN SODIUM [Concomitant]
  4. BETA BLOCKING AGENTS [Concomitant]

REACTIONS (3)
  - MUSCLE SPASMS [None]
  - MYALGIA [None]
  - MYOCLONIC EPILEPSY [None]
